FAERS Safety Report 5318890-7 (Version None)
Quarter: 2007Q2

REPORT INFORMATION
  Report Type: 
  Country: None (occurrence: None)
  Receive Date: 20070508
  Receipt Date: 20070430
  Transmission Date: 20071010
  Serious: Yes (Hospitalization)
  Sender: FDA-Public Use
  Company Number: CH-GENENTECH-240916

PATIENT
  Age: 62 Year
  Sex: Female

DRUGS (6)
  1. RITUXIMAB [Suspect]
     Indication: B-CELL LYMPHOMA
     Dosage: 375 MG/M2, UNK
  2. CYCLOPHOSPHAMIDE [Suspect]
     Indication: B-CELL LYMPHOMA
     Dosage: 750 MG/M2, UNK
  3. DOXORUBICIN HCL [Suspect]
     Indication: B-CELL LYMPHOMA
     Dosage: 50 MG/M2, UNK
  4. VINCRISTINE [Suspect]
     Indication: B-CELL LYMPHOMA
     Dosage: 2 MG, UNK
  5. PREDNISONE TAB [Suspect]
     Indication: B-CELL LYMPHOMA
     Dosage: 100 MG, UNK
  6. NEUPOGEN [Suspect]
     Indication: PROPHYLAXIS
     Route: 058

REACTIONS (1)
  - REVERSIBLE POSTERIOR LEUKOENCEPHALOPATHY SYNDROME [None]
